FAERS Safety Report 24239573 (Version 1)
Quarter: 2024Q3

REPORT INFORMATION
  Report Type: Spontaneous
  Country: US (occurrence: US)
  Receive Date: 20240822
  Receipt Date: 20240822
  Transmission Date: 20241017
  Serious: No
  Sender: AVADEL CNS PHARMA
  Company Number: US-AVADEL CNS PHARMACEUTICALS, LLC-2024AVA00728

PATIENT
  Sex: Female
  Weight: 59.864 kg

DRUGS (7)
  1. LUMRYZ [Suspect]
     Active Substance: SODIUM OXYBATE
     Indication: Narcolepsy
     Dosage: 4.5 G, ONCE NIGHTLY
     Route: 048
     Dates: start: 202401, end: 202404
  2. LUMRYZ [Suspect]
     Active Substance: SODIUM OXYBATE
     Indication: Narcolepsy
     Dosage: 6 G, ONCE NIGHTLY
     Route: 048
     Dates: start: 202404
  3. TIZANIDINE [Suspect]
     Active Substance: TIZANIDINE
     Indication: Insomnia
     Dosage: 1-2 TABLETS (2-4 MG), AS NEEDED AT BEDTIME (TAKEN ONLY ON NIGHTS WHERE SHE SKIPS A DOSE OF LUMRYZ)
     Dates: start: 2024
  4. ONCE DAILY ENERGY COMPLETE MULTIVITAMIN [Concomitant]
     Dosage: UNK, 1X/DAY
  5. VITAMIN D3 [Concomitant]
     Active Substance: CHOLECALCIFEROL
     Dosage: 1000 IU, 1X/DAY
  6. LORYNA [Concomitant]
     Active Substance: DROSPIRENONE\ETHINYL ESTRADIOL
     Dosage: 3MG/0.2 MG, 1X/DAY
  7. FLUOXETINE [Concomitant]
     Active Substance: FLUOXETINE HYDROCHLORIDE
     Dosage: 20 MG, 1X/DAY

REACTIONS (4)
  - Therapeutic response unexpected [Not Recovered/Not Resolved]
  - Insomnia [Recovering/Resolving]
  - Sleep deficit [Not Recovered/Not Resolved]
  - Intentional dose omission [Not Recovered/Not Resolved]

NARRATIVE: CASE EVENT DATE: 20240101
